APPROVED DRUG PRODUCT: TRIDIL
Active Ingredient: NITROGLYCERIN
Strength: 5MG/ML
Dosage Form/Route: INJECTABLE;INJECTION
Application: N018537 | Product #001
Applicant: HOSPIRA INC
Approved: Approved Prior to Jan 1, 1982 | RLD: No | RS: No | Type: DISCN